FAERS Safety Report 9300162 (Version 1)
Quarter: 2013Q1

REPORT INFORMATION
  Report Type: Spontaneous
  Country: US (occurrence: None)
  Receive Date: 20121231
  Receipt Date: 20121231
  Transmission Date: 20140127
  Serious: Yes (Death, Life-Threatening, Other)
  Sender: FDA-Public Use
  Company Number: RB-43905-2012

PATIENT
  Age: 36 Year
  Sex: Female

DRUGS (8)
  1. SUBOXONE [Suspect]
     Indication: DRUG DEPENDENCE
     Dosage: 24MG SUBOXONE FILM; DOSING DETAILS UNKNOWN SUBLINGUAL
  2. ALCOHOL [Suspect]
     Dosage: DOSAGE  UNKNOWN INDICATION
  3. XANAX XR [Suspect]
     Dosage: 2MG UNKNOWN
  4. XANAX (NOT SPECIFIED) [Suspect]
     Dosage: 2MG UNKNOWN)
  5. INVEGA (UNKNOWN) [Concomitant]
  6. PRISTIQ (UNKNOWN) [Concomitant]
  7. COCAINE [Suspect]
     Indication: PRODUCT USED FOR UNKNOWN INDICATION
     Dosage: (DOSING DETAILS UNKNOWN)
  8. MORPHINE [Suspect]
     Indication: PRODUCT USED FOR UNKNOWN INDICATION
     Dosage: (DOSING DETAILS UNKNOWN)

REACTIONS (2)
  - Toxicity to various agents [None]
  - Abnormal behaviour [None]
